APPROVED DRUG PRODUCT: SOTALOL HYDROCHLORIDE
Active Ingredient: SOTALOL HYDROCHLORIDE
Strength: 150MG/10ML (15MG/ML)
Dosage Form/Route: SOLUTION;INTRAVENOUS
Application: N022306 | Product #001
Applicant: ALTATHERA PHARMACEUTICALS LLC
Approved: Jul 2, 2009 | RLD: Yes | RS: Yes | Type: RX

PATENTS:
Patent 10512620 | Expires: Aug 14, 2038
Patent 12390431 | Expires: Aug 14, 2038
Patent 12403109 | Expires: Aug 14, 2028
Patent 11583216 | Expires: Aug 21, 2039
Patent 10799138 | Expires: Apr 5, 2039
Patent 11696902 | Expires: Aug 14, 2038
Patent 10512620 | Expires: Aug 14, 2038
Patent 10799138 | Expires: Apr 5, 2039